FAERS Safety Report 6918704-5 (Version None)
Quarter: 2010Q3

REPORT INFORMATION
  Report Type: 
  Country: None (occurrence: None)
  Receive Date: 20100811
  Receipt Date: 20100803
  Transmission Date: 20110219
  Serious: Yes (Hospitalization, Other)
  Sender: FDA-Public Use
  Company Number: PHHY2010DE24745

PATIENT
  Sex: Male

DRUGS (1)
  1. EXTAVIA [Suspect]
     Indication: MULTIPLE SCLEROSIS
     Dosage: 250 UG, QOD
     Route: 058
     Dates: start: 20100218

REACTIONS (9)
  - ANGINA PECTORIS [None]
  - BACK PAIN [None]
  - BLOOD PRESSURE DIASTOLIC INCREASED [None]
  - DIZZINESS [None]
  - EXCORIATION [None]
  - FALL [None]
  - HEADACHE [None]
  - INFLUENZA LIKE ILLNESS [None]
  - SKIN LACERATION [None]
